FAERS Safety Report 13730948 (Version 2)
Quarter: 2017Q4

REPORT INFORMATION
  Report Type: Spontaneous
  Country: US (occurrence: US)
  Receive Date: 20170707
  Receipt Date: 20171121
  Transmission Date: 20180320
  Serious: Yes (Other)
  Sender: FDA-Public Use
  Company Number: US-JNJFOC-20170612938

PATIENT
  Age: 79 Year
  Sex: Male

DRUGS (5)
  1. XARELTO [Suspect]
     Active Substance: RIVAROXABAN
     Indication: THROMBOSIS PROPHYLAXIS
     Dosage: PRESCRIBED 20 MG BUT INDICATED TO TAKE 1/2 TABLET (10 MG) PER DAY
     Route: 048
     Dates: start: 20150325, end: 20150706
  2. XARELTO [Suspect]
     Active Substance: RIVAROXABAN
     Indication: ATRIAL FIBRILLATION
     Dosage: PRESCRIBED 20 MG BUT INDICATED TO TAKE 1/2 TABLET (10 MG) PER DAY
     Route: 048
     Dates: start: 20150325, end: 20150706
  3. XARELTO [Suspect]
     Active Substance: RIVAROXABAN
     Indication: THROMBOSIS PROPHYLAXIS
     Dosage: PRESCRIBED 20 MG BUT INDICATED TO TAKE 1/2 TABLET (10 MG) PER DAY
     Route: 048
     Dates: start: 20150325, end: 20150706
  4. XARELTO [Suspect]
     Active Substance: RIVAROXABAN
     Indication: CEREBROVASCULAR ACCIDENT PROPHYLAXIS
     Dosage: PRESCRIBED 20 MG BUT INDICATED TO TAKE 1/2 TABLET (10 MG) PER DAY
     Route: 048
     Dates: start: 20150325, end: 20150706
  5. ACETYLSALICYLIC ACID [Suspect]
     Active Substance: ASPIRIN
     Indication: PRODUCT USED FOR UNKNOWN INDICATION
     Route: 065
     Dates: end: 201506

REACTIONS (5)
  - Epistaxis [Unknown]
  - Off label use [Unknown]
  - Prescribed underdose [Unknown]
  - Retinal haemorrhage [Unknown]
  - Wrong technique in product usage process [Unknown]

NARRATIVE: CASE EVENT DATE: 20150325
